FAERS Safety Report 13527680 (Version 1)
Quarter: 2017Q2

REPORT INFORMATION
  Report Type: Spontaneous
  Country: US (occurrence: US)
  Receive Date: 20170509
  Receipt Date: 20170509
  Transmission Date: 20170830
  Serious: No
  Sender: FDA-Public Use
  Company Number: US-GLAXOSMITHKLINE-US2017066777

PATIENT
  Sex: Female

DRUGS (9)
  1. BREO ELLIPTA [Suspect]
     Active Substance: FLUTICASONE FUROATE\VILANTEROL TRIFENATATE
     Indication: EMPHYSEMA
  2. ASPIRIN. [Concomitant]
     Active Substance: ASPIRIN
  3. DULOXETINE. [Concomitant]
     Active Substance: DULOXETINE
  4. BREO ELLIPTA [Suspect]
     Active Substance: FLUTICASONE FUROATE\VILANTEROL TRIFENATATE
     Indication: CHRONIC OBSTRUCTIVE PULMONARY DISEASE
     Dosage: 1 PUFF(S), UNK
     Route: 055
     Dates: start: 20170321
  5. FENTANYL TRANSDERMAL SYSTEM [Concomitant]
     Active Substance: FENTANYL
  6. MAGNESIUM [Concomitant]
     Active Substance: MAGNESIUM
  7. B COMPLEX + VITAMIN C [Concomitant]
  8. VITAMIN C [Concomitant]
     Active Substance: ASCORBIC ACID
  9. ALIGN [Concomitant]
     Active Substance: BIFIDOBACTERIUM LONGUM SUBSP. INFANTIS

REACTIONS (2)
  - Paraesthesia [Not Recovered/Not Resolved]
  - Pain in jaw [Not Recovered/Not Resolved]
